FAERS Safety Report 26073577 (Version 2)
Quarter: 2025Q4

REPORT INFORMATION
  Report Type: Report from Study
  Country: TW (occurrence: TW)
  Receive Date: 20251121
  Receipt Date: 20251211
  Transmission Date: 20260117
  Serious: Yes (Hospitalization, Other)
  Sender: IPSEN BIOPHARMACEUTICALS, INC.
  Company Number: TW-IPSEN Group, Research and Development-2025-28367

PATIENT
  Age: 66 Year
  Sex: Male
  Weight: 71.3 kg

DRUGS (1)
  1. ONIVYDE [Suspect]
     Active Substance: IRINOTECAN HYDROCHLORIDE
     Indication: Adenocarcinoma pancreas
     Route: 042
     Dates: start: 20251001, end: 20251029

REACTIONS (9)
  - Pyrexia [Recovered/Resolved]
  - Cholangitis [Unknown]
  - Pyrexia [Recovered/Resolved]
  - Jaundice [Unknown]
  - Metastases to liver [Unknown]
  - Cholangiocarcinoma [Unknown]
  - Pulmonary embolism [Unknown]
  - Sepsis [Unknown]
  - Dizziness [Unknown]

NARRATIVE: CASE EVENT DATE: 20251106
